FAERS Safety Report 8836680 (Version 1)
Quarter: 2012Q4

REPORT INFORMATION
  Report Type: Spontaneous
  Country: CA (occurrence: None)
  Receive Date: 20121009
  Receipt Date: 20121009
  Transmission Date: 20130627
  Serious: Yes (Other)
  Sender: FDA-Public Use
  Company Number: FK201202889

PATIENT
  Age: 69 Year
  Sex: Female

DRUGS (5)
  1. VANCOMYCIN [Suspect]
     Indication: ENDOCARDITIS
     Route: 042
  2. GENTAMICIN [Suspect]
     Indication: ENDOCARDITIS
     Route: 042
  3. RIFAMPIN [Suspect]
     Indication: ENDOCARDITIS
     Route: 048
  4. CEFTRIAXON (MANUFACTURER UNKNOWN) (CEFTRIAXON-DINATRIUM) (CEFTRIAXON-DINATRIUM) [Suspect]
     Indication: PRODUCT USED FOR UNKNOWN INDICATION
  5. DAPTOMYCIN (DAPTOMYCIN) [Concomitant]

REACTIONS (4)
  - Resting tremor [None]
  - Renal impairment [None]
  - Activities of daily living impaired [None]
  - Discomfort [None]
